FAERS Safety Report 21989870 (Version 1)
Quarter: 2023Q1

REPORT INFORMATION
  Report Type: Spontaneous
  Country: CN (occurrence: CN)
  Receive Date: 20230214
  Receipt Date: 20230214
  Transmission Date: 20230418
  Serious: Yes (Other)
  Sender: FDA-Public Use
  Company Number: CN-PFIZER INC-PV202300026546

PATIENT
  Age: 92 Year
  Sex: Male
  Weight: 80 kg

DRUGS (2)
  1. ZYVOX [Suspect]
     Active Substance: LINEZOLID
     Indication: Symptomatic treatment
     Dosage: 300 ML, 2X/DAY
     Route: 041
     Dates: start: 20221122, end: 20221203
  2. MEROPENEM [Concomitant]
     Active Substance: MEROPENEM
     Indication: Symptomatic treatment
     Dosage: 0.5 G, 3X/DAY
     Route: 041
     Dates: start: 20221110, end: 20221129

REACTIONS (2)
  - Platelet count decreased [Recovering/Resolving]
  - Petechiae [Recovering/Resolving]

NARRATIVE: CASE EVENT DATE: 20221203
